FAERS Safety Report 6453317-3 (Version None)
Quarter: 2009Q3

REPORT INFORMATION
  Report Type: 
  Country: None (occurrence: None)
  Receive Date: 20090923
  Receipt Date: 20090923
  Transmission Date: 20100115
  Serious: Yes (Death)
  Sender: FDA-Public Use
  Company Number: None

PATIENT
  Age: 68 Year
  Weight: 64.3201 kg

DRUGS (7)
  1. ONTAK [Suspect]
     Indication: OVARIAN CANCER METASTATIC
     Dosage: 12 MCG/ KG IV Q 28 DAYS
     Route: 042
     Dates: start: 20090629
  2. ZOFRAN [Concomitant]
  3. MORPHINE SULFATE [Concomitant]
  4. ATIVAN [Concomitant]
  5. DURAGESIC-100 [Concomitant]
  6. PROTONIX [Concomitant]
  7. REGLAN [Concomitant]

REACTIONS (1)
  - UPPER GASTROINTESTINAL HAEMORRHAGE [None]
